FAERS Safety Report 7225192-0 (Version None)
Quarter: 2011Q1

REPORT INFORMATION
  Report Type: 
  Country: None (occurrence: None)
  Receive Date: 20110113
  Receipt Date: 20101222
  Transmission Date: 20110831
  Serious: Yes (Hospitalization, Congenital Anomaly)
  Sender: FDA-Public Use
  Company Number: A0905123A

PATIENT
  Sex: Female

DRUGS (3)
  1. PAXIL [Suspect]
  2. MULTIVITAMIN [Concomitant]
  3. PROZAC [Concomitant]

REACTIONS (4)
  - LEFT VENTRICULAR DYSFUNCTION [None]
  - CEREBELLAR HAEMORRHAGE [None]
  - MITRAL VALVE INCOMPETENCE [None]
  - DRUG EXPOSURE DURING PREGNANCY [None]
